FAERS Safety Report 6918097-3 (Version None)
Quarter: 2010Q3

REPORT INFORMATION
  Report Type: 
  Country: None (occurrence: None)
  Receive Date: 20100806
  Receipt Date: 20100722
  Transmission Date: 20110219
  Serious: Yes (Other)
  Sender: FDA-Public Use
  Company Number: DSJ-2010-12103

PATIENT
  Age: 42 Year
  Sex: Female

DRUGS (9)
  1. AMLODIPINE BESYLATE AND OLMESARTAN MEDOXOMIL [Suspect]
     Indication: HYPERTENSION
     Dosage: 40/5 MG (1 IN 1 D), PER ORAL
     Route: 048
     Dates: start: 20100101
  2. FLUOXETINE [Concomitant]
  3. CLONAZEPAM [Concomitant]
  4. GLUCOSAMINE SULFATE/CHONDROITIN SULFATE [Concomitant]
  5. ETODOLAC [Suspect]
  6. DICLOFENAC POTASSIUM [Concomitant]
  7. MIRTAZAPINE [Concomitant]
  8. OMEGA 3 (EICOSAPENTAENOIC ACID, DOCOSAHEXANOIC ACID)(EICOSAPENTAENOIC [Concomitant]
  9. HOMEOPATHIC MEDICINE [Concomitant]

REACTIONS (5)
  - BLOOD PRESSURE SYSTOLIC INCREASED [None]
  - DRUG INEFFECTIVE [None]
  - HEADACHE [None]
  - NAUSEA [None]
  - SUICIDE ATTEMPT [None]
